FAERS Safety Report 25477267 (Version 2)
Quarter: 2025Q3

REPORT INFORMATION
  Report Type: Spontaneous
  Country: PK (occurrence: PK)
  Receive Date: 20250625
  Receipt Date: 20250714
  Transmission Date: 20251021
  Serious: Yes (Death, Other)
  Sender: ROCHE
  Company Number: PK-ROCHE-10000319916

PATIENT
  Age: 7 Year
  Sex: Male
  Weight: 24 kg

DRUGS (1)
  1. HEMLIBRA [Suspect]
     Active Substance: EMICIZUMAB-KXWH
     Indication: Factor VIII deficiency
     Route: 058
     Dates: start: 20241019, end: 20250623

REACTIONS (6)
  - Head injury [Fatal]
  - Accident [Fatal]
  - Fall [Unknown]
  - Pneumocephalus [Unknown]
  - Brain contusion [Recovering/Resolving]
  - Cerebral mass effect [Recovering/Resolving]

NARRATIVE: CASE EVENT DATE: 20250605
